FAERS Safety Report 7545623-6 (Version None)
Quarter: 2011Q2

REPORT INFORMATION
  Report Type: 
  Country: None (occurrence: None)
  Receive Date: 20110525
  Receipt Date: 20110303
  Transmission Date: 20111010
  Serious: No
  Sender: FDA-Public Use
  Company Number: 324415

PATIENT
  Age: 62 Year
  Sex: Female

DRUGS (2)
  1. VICTOZA [Suspect]
     Indication: TYPE 2 DIABETES MELLITUS
     Dosage: 0.6 MG, QD, SUBCUTANEOUS
     Route: 058
     Dates: start: 20110220
  2. METFORMIN HCL [Concomitant]

REACTIONS (3)
  - EYE PRURITUS [None]
  - DIARRHOEA [None]
  - VISION BLURRED [None]
